FAERS Safety Report 17228210 (Version 1)
Quarter: 2020Q1

REPORT INFORMATION
  Report Type: Spontaneous
  Country: AF (occurrence: AF)
  Receive Date: 20200102
  Receipt Date: 20200102
  Transmission Date: 20200409
  Serious: Yes (Hospitalization)
  Sender: FDA-Public Use
  Company Number: None

PATIENT
  Age: 78 Year
  Sex: Female

DRUGS (2)
  1. IMBRUVICA [Suspect]
     Active Substance: IBRUTINIB
  2. IMBRUVICA [Concomitant]
     Active Substance: IBRUTINIB

REACTIONS (5)
  - Diastolic dysfunction [None]
  - Atrioventricular block first degree [None]
  - Troponin increased [None]
  - Acute myocardial infarction [None]
  - Electrocardiogram T wave inversion [None]

NARRATIVE: CASE EVENT DATE: 20191201
